FAERS Safety Report 5924985-7 (Version None)
Quarter: 2008Q3

REPORT INFORMATION
  Report Type: 
  Country: None (occurrence: None)
  Receive Date: 20080909
  Receipt Date: 20080407
  Transmission Date: 20090109
  Serious: Yes (Death)
  Sender: FDA-Public Use
  Company Number: 163-20785-08040502

PATIENT
  Age: 63 Year
  Sex: Female

DRUGS (2)
  1. THALOMID [Suspect]
     Indication: AMYLOIDOSIS
     Dosage: 200 MG, 1 IN 1 D, ORAL. 100-150 MG, DAILY, ORAL
     Route: 048
     Dates: start: 20070726, end: 20071001
  2. THALOMID [Suspect]
     Indication: AMYLOIDOSIS
     Dosage: 200 MG, 1 IN 1 D, ORAL. 100-150 MG, DAILY, ORAL
     Route: 048
     Dates: start: 20071019, end: 20071201

REACTIONS (1)
  - AMYLOIDOSIS [None]
